FAERS Safety Report 5528847-9 (Version None)
Quarter: 2007Q4

REPORT INFORMATION
  Report Type: 
  Country: None (occurrence: None)
  Receive Date: 20071129
  Receipt Date: 20071120
  Transmission Date: 20080405
  Serious: Yes (Hospitalization)
  Sender: FDA-Public Use
  Company Number: US-JNJFOC-20071107923

PATIENT
  Sex: Female
  Weight: 114.31 kg

DRUGS (2)
  1. FENTANYL TRANSDERMAL SYSTEM [Suspect]
     Indication: ARTHRITIS
     Route: 062
  2. OXYCODONE HCL [Concomitant]
     Indication: PAIN
     Route: 048

REACTIONS (6)
  - BLOOD CALCIUM DECREASED [None]
  - BLOOD TEST ABNORMAL [None]
  - EATING DISORDER [None]
  - INADEQUATE ANALGESIA [None]
  - SOMNOLENCE [None]
  - WEIGHT DECREASED [None]
